FAERS Safety Report 9049542 (Version 1)
Quarter: 2013Q1

REPORT INFORMATION
  Report Type: Spontaneous
  Country: JP (occurrence: JP)
  Receive Date: 20130205
  Receipt Date: 20130205
  Transmission Date: 20140127
  Serious: Yes (Other)
  Sender: FDA-Public Use
  Company Number: JP-MYLANLABS-2013S1001775

PATIENT
  Age: 62 Year
  Sex: Male

DRUGS (4)
  1. ABATACEPT [Suspect]
     Indication: RHEUMATOID ARTHRITIS
     Route: 065
  2. TACROLIMUS [Suspect]
     Indication: RHEUMATOID ARTHRITIS
     Dosage: 2 MG/D
     Route: 065
  3. PREDNISOLONE [Concomitant]
     Indication: INTERSTITIAL LUNG DISEASE
     Dosage: 60 MG/D (1 MG/KG/D); THEN REDUCED
     Route: 048
  4. PREDNISOLONE [Concomitant]
     Dosage: 2 MG/D
     Route: 048

REACTIONS (4)
  - Interstitial lung disease [Recovered/Resolved]
  - Abdominal distension [Recovering/Resolving]
  - Diarrhoea [Recovering/Resolving]
  - Pruritus generalised [Unknown]
